FAERS Safety Report 10094578 (Version 2)
Quarter: 2014Q2

REPORT INFORMATION
  Report Type: Spontaneous
  Country: US (occurrence: US)
  Receive Date: 20140422
  Receipt Date: 20140509
  Transmission Date: 20141212
  Serious: No
  Sender: FDA-Public Use
  Company Number: US-PFIZER INC-2014108845

PATIENT
  Age: 48 Year
  Sex: Female

DRUGS (3)
  1. GABAPENTIN [Suspect]
     Indication: FIBROMYALGIA
     Dosage: 100 MG, 3X/DAY
     Dates: start: 201402, end: 20140415
  2. GABAPENTIN [Suspect]
     Dosage: 100 MG, 3X/DAY
     Route: 048
     Dates: start: 20140210
  3. OMEPRAZOLE [Concomitant]

REACTIONS (7)
  - Abdominal discomfort [Unknown]
  - Drug ineffective for unapproved indication [Unknown]
  - Pain [Unknown]
  - Crying [Unknown]
  - Gastric disorder [Unknown]
  - Abdominal pain upper [Unknown]
  - Diarrhoea [Unknown]
